FAERS Safety Report 25260614 (Version 3)
Quarter: 2025Q3

REPORT INFORMATION
  Report Type: Report from Study
  Country: US (occurrence: US)
  Receive Date: 20250501
  Receipt Date: 20250802
  Transmission Date: 20251020
  Serious: Yes (Other)
  Sender: ALEXION PHARMACEUTICALS
  Company Number: US-AstraZeneca-CH-00860317A

PATIENT
  Sex: Male
  Weight: 95.3 kg

DRUGS (10)
  1. FARXIGA [Suspect]
     Active Substance: DAPAGLIFLOZIN PROPANEDIOL
     Dosage: 10 MILLIGRAM, QD
     Dates: start: 20250106, end: 20250406
  2. CRESTOR [Suspect]
     Active Substance: ROSUVASTATIN CALCIUM
     Route: 065
  3. ACETAMINOPHEN [Concomitant]
     Active Substance: ACETAMINOPHEN
     Dosage: 650 MILLIGRAM, Q8H
  4. ASPIRIN [Concomitant]
     Active Substance: ASPIRIN
  5. DONEPEZIL [Concomitant]
     Active Substance: DONEPEZIL
  6. FERROUS SULFATE [Concomitant]
     Active Substance: FERROUS SULFATE
  7. LOSARTAN [Concomitant]
     Active Substance: LOSARTAN
     Dosage: 10 MILLIGRAM, QD
     Dates: start: 20211207
  8. METFORMIN [Concomitant]
     Active Substance: METFORMIN HYDROCHLORIDE
  9. TAMSULOSIN [Concomitant]
     Active Substance: TAMSULOSIN
     Dosage: 0.4 MILLIGRAM, QD
  10. TAMSULOSIN [Concomitant]
     Active Substance: TAMSULOSIN
     Dosage: 50 MG EVERY 6 HRS
     Dates: start: 20241230, end: 20250129

REACTIONS (20)
  - Chronic kidney disease [Unknown]
  - Nephrosclerosis [Unknown]
  - Arteriosclerosis [Unknown]
  - NSAID exacerbated respiratory disease [Unknown]
  - Nephrolithiasis [Unknown]
  - Single functional kidney [Unknown]
  - Diabetes mellitus [Unknown]
  - Hypertension [Unknown]
  - Renal disorder [Unknown]
  - Ischaemic cardiomyopathy [Unknown]
  - Renal mass [Unknown]
  - Memory impairment [Unknown]
  - Normocytic anaemia [Unknown]
  - Haematuria [Unknown]
  - Benign prostatic hyperplasia [Unknown]
  - Obstructive sleep apnoea syndrome [Unknown]
  - Hyperlipidaemia [Unknown]
  - Cyst [Unknown]
  - Osteoarthritis [Unknown]
  - Health assessment questionnaire score [Unknown]
